FAERS Safety Report 6518382-3 (Version None)
Quarter: 2009Q4

REPORT INFORMATION
  Report Type: 
  Country: None (occurrence: None)
  Receive Date: 20091224
  Receipt Date: 20091216
  Transmission Date: 20100525
  Serious: Yes (Hospitalization)
  Sender: FDA-Public Use
  Company Number: JP-GENENTECH-296061

PATIENT
  Age: 8 Year
  Sex: Female
  Weight: 22.4 kg

DRUGS (1)
  1. SOMATROPIN [Suspect]
     Indication: TURNER'S SYNDROME
     Dosage: UNK
     Route: 065
     Dates: start: 20060501

REACTIONS (1)
  - NEPHROTIC SYNDROME [None]
